FAERS Safety Report 20756171 (Version 7)
Quarter: 2022Q3

REPORT INFORMATION
  Report Type: Report from Study
  Country: US (occurrence: US)
  Receive Date: 20220427
  Receipt Date: 20220819
  Transmission Date: 20221026
  Serious: Yes (Death, Life-Threatening, Hospitalization, Other)
  Sender: FDA-Public Use
  Company Number: US-INSMED, INC.-2021-08785-US

PATIENT
  Sex: Male

DRUGS (4)
  1. ARIKAYCE [Suspect]
     Active Substance: AMIKACIN
     Indication: Mycobacterium avium complex infection
     Dosage: 590 MILLIGRAM, QD
     Route: 055
     Dates: start: 20210607, end: 20210925
  2. ARIKAYCE [Suspect]
     Active Substance: AMIKACIN
     Dosage: 590 MILLIGRAM, QD
     Route: 055
     Dates: start: 202110, end: 202110
  3. ARIKAYCE [Suspect]
     Active Substance: AMIKACIN
     Dosage: 590 MILIGRAM, QD
     Route: 055
     Dates: start: 2021, end: 2022
  4. ARIKAYCE [Suspect]
     Active Substance: AMIKACIN
     Dosage: 590 MILLIGRAM, QD
     Route: 055
     Dates: start: 20220419

REACTIONS (14)
  - Oxygen saturation decreased [Unknown]
  - Death [Fatal]
  - Hospitalisation [Unknown]
  - Lung disorder [Unknown]
  - Life support [Unknown]
  - Surgery [Unknown]
  - Pneumothorax [Recovered/Resolved]
  - Pneumothorax [Recovered/Resolved]
  - Choking [Recovering/Resolving]
  - Throat irritation [Recovering/Resolving]
  - Dyspnoea [Recovering/Resolving]
  - Therapy interrupted [Unknown]
  - Device physical property issue [Unknown]
  - Drug dose omission by device [Unknown]

NARRATIVE: CASE EVENT DATE: 20210101
